FAERS Safety Report 6220382-8 (Version None)
Quarter: 2009Q2

REPORT INFORMATION
  Report Type: 
  Country: None (occurrence: None)
  Receive Date: 20090610
  Receipt Date: 20090602
  Transmission Date: 20091009
  Serious: Yes (Death, Life-Threatening, Hospitalization)
  Sender: FDA-Public Use
  Company Number: ES-CELGENEUS-AZAPT200800191

PATIENT
  Sex: Male
  Weight: 62 kg

DRUGS (6)
  1. VIDAZA [Suspect]
     Indication: MYELODYSPLASTIC SYNDROME
     Route: 058
     Dates: start: 20080505, end: 20080604
  2. VIDAZA [Suspect]
  3. DEFLAZACORTE [Concomitant]
     Indication: VASCULITIS
     Route: 065
  4. OMEPRAZOLE [Concomitant]
     Indication: DRUG USE FOR UNKNOWN INDICATION
     Route: 065
  5. AUGMENTIN [Concomitant]
     Route: 065
  6. AUGMENTIN [Concomitant]
     Indication: COUGH

REACTIONS (4)
  - NEUTROPENIA [None]
  - PNEUMONIA [None]
  - PULMONARY FIBROSIS [None]
  - REFRACTORY ANAEMIA WITH AN EXCESS OF BLASTS [None]
